FAERS Safety Report 25852241 (Version 1)
Quarter: 2025Q3

REPORT INFORMATION
  Report Type: Report from Study
  Country: EG (occurrence: EG)
  Receive Date: 20250926
  Receipt Date: 20250926
  Transmission Date: 20251020
  Serious: Yes (Death)
  Sender: ROCHE
  Company Number: EG-ROCHE-10000361762

PATIENT
  Age: 65 Year
  Sex: Female
  Weight: 75 kg

DRUGS (1)
  1. TECENTRIQ [Suspect]
     Active Substance: ATEZOLIZUMAB
     Indication: Hepatocellular carcinoma
     Route: 042
     Dates: start: 20250721, end: 20250810

REACTIONS (3)
  - Peripheral swelling [Unknown]
  - Death [Fatal]
  - Pain [Unknown]

NARRATIVE: CASE EVENT DATE: 20250725
